FAERS Safety Report 21742030 (Version 2)
Quarter: 2023Q1

REPORT INFORMATION
  Report Type: Report from Study
  Country: GR (occurrence: GR)
  Receive Date: 20221216
  Receipt Date: 20230129
  Transmission Date: 20230417
  Serious: No
  Sender: FDA-Public Use
  Company Number: GR-BAYER-2022A170965

PATIENT
  Age: 68 Year
  Sex: Male

DRUGS (6)
  1. RIVAROXABAN [Suspect]
     Active Substance: RIVAROXABAN
     Indication: Product used for unknown indication
     Route: 048
  2. CLOPIDOGREL [Interacting]
     Active Substance: CLOPIDOGREL BISULFATE
  3. ASPIRIN [Interacting]
     Active Substance: ASPIRIN
     Indication: Product used for unknown indication
     Route: 065
  4. ATORVASTATIN [Concomitant]
     Active Substance: ATORVASTATIN
  5. RANITIDINE [Concomitant]
     Active Substance: RANITIDINE
  6. ARB [LOSARTAN POTASSIUM] [Concomitant]

REACTIONS (2)
  - Epistaxis [Unknown]
  - Labelled drug-drug interaction medication error [Unknown]
